FAERS Safety Report 7219219-X (Version None)
Quarter: 2011Q1

REPORT INFORMATION
  Report Type: 
  Country: None (occurrence: None)
  Receive Date: 20110111
  Receipt Date: 20101228
  Transmission Date: 20110831
  Serious: No
  Sender: FDA-Public Use
  Company Number: US-PFIZER INC-2010181187

PATIENT
  Sex: Female
  Weight: 104 kg

DRUGS (9)
  1. SPIRIVA [Concomitant]
     Dosage: UNK
  2. ADVAIR [Concomitant]
     Dosage: UNK
  3. LEXAPRO [Concomitant]
     Dosage: UNK
  4. ALLEGRA D 24 HOUR [Concomitant]
     Dosage: UNK
  5. CHANTIX [Suspect]
     Indication: SMOKING CESSATION THERAPY
     Dosage: UNK
     Dates: start: 20060101
  6. CHANTIX [Suspect]
     Dosage: 0.5 MG, 2X/DAY
     Dates: start: 20101025, end: 20101028
  7. EVISTA [Concomitant]
     Dosage: UNK
  8. CHANTIX [Suspect]
     Dosage: 0.5 MG, 1X/DAY
     Dates: start: 20101023, end: 20101025
  9. CHANTIX [Suspect]
     Dosage: 1 MG, 2X/DAY
     Dates: start: 20101028, end: 20101224

REACTIONS (1)
  - RASH [None]
